FAERS Safety Report 21263868 (Version 1)
Quarter: 2022Q3

REPORT INFORMATION
  Report Type: Spontaneous
  Country: CA (occurrence: CA)
  Receive Date: 20220829
  Receipt Date: 20220829
  Transmission Date: 20221027
  Serious: Yes (Hospitalization)
  Sender: FDA-Public Use
  Company Number: CA-TEVA-2022-CA-2067682

PATIENT
  Age: 3 Decade
  Sex: Male

DRUGS (3)
  1. FLUVOXAMINE [Interacting]
     Active Substance: FLUVOXAMINE
     Indication: Psychotic disorder
     Dosage: 225 MILLIGRAM DAILY; THERAPY DURATION : 2.0 MONTHS
     Route: 065
  2. CLOZAPINE [Suspect]
     Active Substance: CLOZAPINE
     Indication: Psychotic disorder
     Dosage: 300 MILLIGRAM DAILY;
     Route: 065
  3. CLOZAPINE [Suspect]
     Active Substance: CLOZAPINE
     Dosage: 150 MILLIGRAM DAILY; THERAPY DURATION : 2.0 MONTHS
     Route: 065

REACTIONS (7)
  - Condition aggravated [Unknown]
  - Orthostatic hypotension [Unknown]
  - Salivary hypersecretion [Unknown]
  - Sedation [Unknown]
  - Drug level increased [Unknown]
  - Drug ineffective [Unknown]
  - Labelled drug-drug interaction medication error [Unknown]
